FAERS Safety Report 14174188 (Version 2)
Quarter: 2017Q4

REPORT INFORMATION
  Report Type: Spontaneous
  Country: EG (occurrence: EG)
  Receive Date: 20171109
  Receipt Date: 20171124
  Transmission Date: 20180321
  Serious: Yes (Death, Hospitalization)
  Sender: FDA-Public Use
  Company Number: EG-SA-2017SA220558

PATIENT
  Age: 4 Year
  Sex: Male
  Weight: 15 kg

DRUGS (1)
  1. CEREZYME [Suspect]
     Active Substance: IMIGLUCERASE
     Indication: GAUCHER^S DISEASE TYPE I
     Dosage: DOSE:40 UNIT(S)/KILOGRAM BODYWEIGHT
     Route: 041
     Dates: start: 20160403, end: 20160904

REACTIONS (7)
  - Ascites [Fatal]
  - Pulmonary function test decreased [Fatal]
  - Condition aggravated [Fatal]
  - Cardiac failure [Fatal]
  - Liver function test increased [Fatal]
  - Hepatosplenomegaly [Fatal]
  - Respiratory failure [Fatal]
